FAERS Safety Report 4559455-4 (Version None)
Quarter: 2005Q1

REPORT INFORMATION
  Report Type: 
  Country: None (occurrence: None)
  Receive Date: 20050124
  Receipt Date: 20050114
  Transmission Date: 20050727
  Serious: Yes (Other)
  Sender: FDA-Public Use
  Company Number: KR-JNJFOC-20041202095

PATIENT
  Age: 72 Year
  Sex: Female

DRUGS (3)
  1. REMINYL [Suspect]
     Route: 049
     Dates: start: 20020701
  2. REMINYL [Suspect]
     Route: 049
     Dates: start: 20020701
  3. ALENDRONATE SODIUM [Concomitant]
     Indication: OSTEOPOROSIS

REACTIONS (2)
  - ARRHYTHMIA [None]
  - ATRIOVENTRICULAR BLOCK [None]
